FAERS Safety Report 9152455 (Version 5)
Quarter: 2013Q2

REPORT INFORMATION
  Report Type: Spontaneous
  Country: US (occurrence: US)
  Receive Date: 20130308
  Receipt Date: 20130610
  Transmission Date: 20140414
  Serious: Yes (Other)
  Sender: FDA-Public Use
  Company Number: US-B.I. PHARMACEUTICALS,INC./RIDGEFIELD-2013-BI-05484BP

PATIENT
  Age: 84 Year
  Sex: Male
  Weight: 54.43 kg

DRUGS (1)
  1. AGGRENOX [Suspect]
     Indication: CEREBROVASCULAR ACCIDENT PROPHYLAXIS
     Route: 048
     Dates: start: 2006

REACTIONS (10)
  - Transient ischaemic attack [Unknown]
  - Transient ischaemic attack [Unknown]
  - Coagulation time shortened [Unknown]
  - Skin disorder [Unknown]
  - Drug ineffective [Recovered/Resolved]
  - General physical condition [Unknown]
  - Fall [Recovered/Resolved]
  - Periorbital contusion [Not Recovered/Not Resolved]
  - Laceration [Recovered/Resolved]
  - Product quality issue [Unknown]
